FAERS Safety Report 8347010-X (Version None)
Quarter: 2012Q2

REPORT INFORMATION
  Report Type: 
  Country: None (occurrence: None)
  Receive Date: 20120509
  Receipt Date: 20120504
  Transmission Date: 20120825
  Serious: Yes (Death, Hospitalization)
  Sender: FDA-Public Use
  Company Number: US-CELGENEUS-163-21880-12040855

PATIENT
  Sex: Female
  Weight: 56.75 kg

DRUGS (4)
  1. DILTIAZEM [Concomitant]
     Dosage: 60 MILLIGRAM
     Route: 065
  2. ASPIRIN [Concomitant]
     Dosage: 81 MILLIGRAM
     Route: 065
  3. REVLIMID [Suspect]
     Indication: MULTIPLE MYELOMA
     Dosage: 25 MILLIGRAM
     Route: 048
     Dates: start: 20120117, end: 20120308
  4. SIMVASTATIN [Concomitant]
     Dosage: 20 MILLIGRAM
     Route: 065

REACTIONS (2)
  - DEATH [None]
  - BLOOD POTASSIUM DECREASED [None]
